FAERS Safety Report 7182796-1 (Version None)
Quarter: 2010Q4

REPORT INFORMATION
  Report Type: 
  Country: None (occurrence: None)
  Receive Date: 20101221
  Receipt Date: 20101213
  Transmission Date: 20110411
  Serious: Yes (Life-Threatening, Hospitalization)
  Sender: FDA-Public Use
  Company Number: BE-AMGEN-BELCT2010009757

PATIENT

DRUGS (6)
  1. ETANERCEPT [Suspect]
     Indication: RHEUMATOID ARTHRITIS
     Dosage: 50 MG, QWK
     Route: 058
     Dates: start: 20090403, end: 20100930
  2. PLAVIX [Concomitant]
     Dosage: UNK
     Dates: end: 20101203
  3. LIPANTHYL [Concomitant]
     Indication: HYPERCHOLESTEROLAEMIA
  4. TENORMIN [Concomitant]
     Dosage: 50 MG, 1X/DAY
     Route: 048
  5. SERLAIN [Concomitant]
  6. RISPERDAL [Concomitant]

REACTIONS (2)
  - GASTROINTESTINAL TRACT ADENOMA [None]
  - PNEUMONIA [None]
